FAERS Safety Report 5498392-8 (Version None)
Quarter: 2007Q4

REPORT INFORMATION
  Report Type: 
  Country: None (occurrence: None)
  Receive Date: 20071025
  Receipt Date: 20071015
  Transmission Date: 20080405
  Serious: Yes (Death, Hospitalization)
  Sender: FDA-Public Use
  Company Number: CN-MERCK-0710CHN00009

PATIENT
  Age: 83 Year
  Sex: Female

DRUGS (1)
  1. PRIMAXIN [Suspect]
     Indication: LUNG INFECTION
     Route: 042
     Dates: start: 20071002, end: 20071007

REACTIONS (1)
  - EPILEPSY [None]
